FAERS Safety Report 19728997 (Version 1)
Quarter: 2021Q3

REPORT INFORMATION
  Report Type: Spontaneous
  Country: IT (occurrence: IT)
  Receive Date: 20210820
  Receipt Date: 20210820
  Transmission Date: 20211014
  Serious: Yes (Other)
  Sender: FDA-Public Use
  Company Number: IT-TEVA-2021-IT-1942612

PATIENT
  Age: 80 Year
  Sex: Male
  Weight: 80 kg

DRUGS (12)
  1. LUVION [Concomitant]
  2. DIDROGYL [Concomitant]
     Active Substance: CALCIFEDIOL
  3. CONGESCOR [Concomitant]
     Active Substance: BISOPROLOL
  4. LASIX [Concomitant]
     Active Substance: FUROSEMIDE
  5. MIRAPEXIN [Concomitant]
     Active Substance: PRAMIPEXOLE
  6. CREON [Concomitant]
     Active Substance: PANCRELIPASE AMYLASE\PANCRELIPASE LIPASE\PANCRELIPASE PROTEASE
  7. RASAGILINE. [Suspect]
     Active Substance: RASAGILINE
     Indication: PARKINSON^S DISEASE
     Dosage: 1MG
     Route: 048
     Dates: start: 20210620, end: 20210701
  8. ELIQUIS [Concomitant]
     Active Substance: APIXABAN
  9. SINEMET [Concomitant]
     Active Substance: CARBIDOPA\LEVODOPA
  10. PEPTAZOL [Concomitant]
  11. AVODART [Concomitant]
     Active Substance: DUTASTERIDE
  12. TORVAST [Concomitant]
     Active Substance: ATORVASTATIN

REACTIONS (3)
  - Disorientation [Recovering/Resolving]
  - Hallucination [Recovering/Resolving]
  - Lethargy [Recovering/Resolving]

NARRATIVE: CASE EVENT DATE: 20210701
